FAERS Safety Report 12453436 (Version 5)
Quarter: 2017Q3

REPORT INFORMATION
  Report Type: Spontaneous
  Country: KR (occurrence: KR)
  Receive Date: 20160609
  Receipt Date: 20170822
  Transmission Date: 20171127
  Serious: Yes (Other)
  Sender: FDA-Public Use
  Company Number: KR-009507513-1606KOR004360

PATIENT
  Age: 44 Year
  Sex: Male
  Weight: 79.8 kg

DRUGS (10)
  1. STOGAR [Concomitant]
     Active Substance: LAFUTIDINE
     Indication: GASTRIC ULCER
     Dosage: 2 TABLETS, BID
     Route: 048
     Dates: start: 20150427, end: 20150520
  2. PORTALAC [Concomitant]
     Active Substance: LACTULOSE
     Indication: CONSTIPATION PROPHYLAXIS
     Dosage: 2 PACK, BID
     Route: 048
     Dates: start: 20150427, end: 20150513
  3. AIRTAL [Concomitant]
     Active Substance: ACECLOFENAC
     Indication: PAIN
     Dosage: 2 TABLETS, BID
     Route: 048
     Dates: start: 20150427, end: 20150520
  4. ALOXI [Concomitant]
     Active Substance: PALONOSETRON HYDROCHLORIDE
     Indication: PREMEDICATION
     Dosage: 5 ML, ONCE
     Route: 042
     Dates: start: 20150511, end: 20150511
  5. GANAKHAN [Concomitant]
     Indication: GASTRIC ULCER
     Dosage: 3 TABLETS (150 MG), TID
     Route: 048
     Dates: start: 20150427, end: 20150520
  6. ULTRACET [Concomitant]
     Active Substance: ACETAMINOPHEN\TRAMADOL HYDROCHLORIDE
     Indication: PAIN
     Dosage: 3 TABLET, TID
     Route: 048
     Dates: start: 20150427, end: 20150520
  7. FLUOROURACIL. [Concomitant]
     Active Substance: FLUOROURACIL
     Indication: LUNG NEOPLASM MALIGNANT
     Dosage: 1500 MG, ONCE (STRENGTH: 1000MG/20ML), CYCLE 1
     Route: 042
     Dates: start: 20150511, end: 20150511
  8. DIABEX [Concomitant]
     Active Substance: METFORMIN HYDROCHLORIDE
     Indication: TYPE 2 DIABETES MELLITUS
     Dosage: 2 TABLETS, BID
     Route: 048
     Dates: start: 2015, end: 20150520
  9. EMEND (FOSAPREPITANT DIMEGLUMINE) [Suspect]
     Active Substance: FOSAPREPITANT DIMEGLUMINE
     Indication: PROPHYLAXIS OF NAUSEA AND VOMITING
     Dosage: 150 MG, ONCE
     Route: 042
     Dates: start: 20150511, end: 20150511
  10. PHAZYME (PANCREATIN (+) SIMETHICONE) [Concomitant]
     Indication: PROPHYLAXIS
     Dosage: 3 TABLETS (285 MG), TID
     Route: 048
     Dates: start: 20150427, end: 20150520

REACTIONS (4)
  - Nausea [Recovering/Resolving]
  - Oedema [Recovering/Resolving]
  - Pain [Recovering/Resolving]
  - Gastric ulcer [Recovering/Resolving]

NARRATIVE: CASE EVENT DATE: 20150511
